FAERS Safety Report 14628737 (Version 1)
Quarter: 2018Q1

REPORT INFORMATION
  Report Type: Spontaneous
  Country: DE (occurrence: DE)
  Receive Date: 20180313
  Receipt Date: 20180313
  Transmission Date: 20180509
  Serious: Yes (Other)
  Sender: FDA-Public Use
  Company Number: DE-VISTAPHARM, INC.-VER201803-000462

PATIENT
  Age: 42 Year
  Sex: Male

DRUGS (11)
  1. FLUPENTIXOL [Suspect]
     Active Substance: FLUPENTIXOL
     Indication: MAJOR DEPRESSION
     Dates: start: 2001
  2. VALPROIC ACID. [Suspect]
     Active Substance: VALPROIC ACID
     Indication: DELUSION
  3. FLUPENTIXOL [Suspect]
     Active Substance: FLUPENTIXOL
     Indication: DELUSION
  4. VALPROIC ACID. [Suspect]
     Active Substance: VALPROIC ACID
     Indication: DEPRESSION
  5. CLOMIPRAMINE [Suspect]
     Active Substance: CLOMIPRAMINE
     Indication: DELUSION
  6. LITHIUM. [Suspect]
     Active Substance: LITHIUM
     Indication: DELUSION
  7. RISPERIDONE. [Suspect]
     Active Substance: RISPERIDONE
     Indication: MAJOR DEPRESSION
  8. VALPROIC ACID. [Suspect]
     Active Substance: VALPROIC ACID
     Dosage: DAY 3 AND THEREAFTER
  9. RISPERIDONE. [Suspect]
     Active Substance: RISPERIDONE
     Indication: DELUSION
  10. CLOMIPRAMINE [Suspect]
     Active Substance: CLOMIPRAMINE
     Indication: MAJOR DEPRESSION
  11. LITHIUM. [Suspect]
     Active Substance: LITHIUM
     Indication: MAJOR DEPRESSION
     Dates: start: 2001

REACTIONS (5)
  - Drug interaction [Unknown]
  - Sedation [Recovered/Resolved]
  - Myoclonus [Recovered/Resolved]
  - Hepatic encephalopathy [Recovered/Resolved]
  - Poisoning [Unknown]
